FAERS Safety Report 9195425 (Version 1)
Quarter: 2013Q1

REPORT INFORMATION
  Report Type: Spontaneous
  Country: US (occurrence: US)
  Receive Date: 20130328
  Receipt Date: 20130328
  Transmission Date: 20140127
  Serious: No
  Sender: FDA-Public Use
  Company Number: US-ALLERGAN-1300691US

PATIENT
  Age: 58 Year
  Sex: Female

DRUGS (2)
  1. LATISSE 0.03% [Suspect]
     Indication: GROWTH OF EYELASHES
     Dosage: 2 GTT, UNK
     Route: 061
     Dates: start: 201211
  2. ELMIRON [Concomitant]
     Indication: CYSTITIS INTERSTITIAL
     Dosage: UNK UNK, BID
     Route: 048
     Dates: start: 2002

REACTIONS (8)
  - Inappropriate schedule of drug administration [Unknown]
  - Wrong technique in drug usage process [Unknown]
  - Incorrect route of drug administration [Unknown]
  - Eye infection [Unknown]
  - Erythema of eyelid [Unknown]
  - Eye irritation [Unknown]
  - Ocular hyperaemia [Unknown]
  - Eye irritation [Unknown]
